FAERS Safety Report 8276758-0 (Version None)
Quarter: 2012Q2

REPORT INFORMATION
  Report Type: 
  Country: None (occurrence: None)
  Receive Date: 20120405
  Receipt Date: 20120327
  Transmission Date: 20120825
  Serious: Yes (Hospitalization)
  Sender: FDA-Public Use
  Company Number: 2012SP016965

PATIENT
  Age: 61 Year
  Sex: Male

DRUGS (5)
  1. TEMOZOLOMIDE [Suspect]
     Indication: GLIOBLASTOMA
     Dosage: 200 MG;PO 200 MG/M2;PO
     Route: 048
     Dates: start: 20120228, end: 20120303
  2. LEUKINE [Suspect]
     Indication: GLIOBLASTOMA
     Dosage: 75 MCG;ID
     Dates: start: 20120103, end: 20120103
  3. LEUKINE [Suspect]
     Indication: GLIOBLASTOMA
     Dosage: 75 MCG;ID
     Dates: start: 20120221, end: 20120221
  4. IMA950 (VACCINES) [Suspect]
     Indication: GLIOBLASTOMA
     Dosage: 4.96 MG;ID
     Dates: start: 20120103, end: 20120103
  5. IMA950 (VACCINES) [Suspect]
     Indication: GLIOBLASTOMA
     Dosage: 4.96 MG;ID
     Dates: start: 20120221, end: 20120221

REACTIONS (10)
  - APHASIA [None]
  - ASTHENIA [None]
  - PURPURA [None]
  - PULMONARY EMBOLISM [None]
  - VOMITING [None]
  - DIARRHOEA [None]
  - NEUTROPHIL COUNT INCREASED [None]
  - FATIGUE [None]
  - TREMOR [None]
  - WHITE BLOOD CELL COUNT INCREASED [None]
